FAERS Safety Report 4902140-7 (Version None)
Quarter: 2006Q1

REPORT INFORMATION
  Report Type: 
  Country: None (occurrence: None)
  Receive Date: 20060206
  Receipt Date: 20060125
  Transmission Date: 20060701
  Serious: Yes (Hospitalization)
  Sender: FDA-Public Use
  Company Number: JP-JNJFOC-20041106197

PATIENT
  Sex: Female
  Weight: 59.5 kg

DRUGS (34)
  1. REMICADE [Suspect]
     Dosage: THIRD DOSE.
     Route: 042
  2. REMICADE [Suspect]
     Dosage: SECOND INFUSION
     Route: 042
  3. REMICADE [Suspect]
     Indication: RHEUMATOID ARTHRITIS
     Dosage: FIRST DOSE
     Route: 042
  4. RHEUMATREX [Suspect]
     Indication: RHEUMATOID ARTHRITIS
     Route: 048
  5. RIMATIL [Suspect]
     Route: 048
  6. MOBIC [Suspect]
     Indication: RHEUMATOID ARTHRITIS
     Route: 048
  7. MUCOSTA [Suspect]
     Indication: RHEUMATOID ARTHRITIS
     Route: 048
  8. PREDONIN [Concomitant]
     Route: 048
  9. PREDONIN [Concomitant]
     Route: 048
  10. PREDONIN [Concomitant]
     Route: 048
  11. PREDONIN [Concomitant]
     Route: 048
  12. PREDONIN [Concomitant]
     Route: 048
  13. PREDONIN [Concomitant]
     Route: 048
  14. PREDONIN [Concomitant]
     Route: 048
  15. PREDONIN [Concomitant]
     Route: 048
  16. PREDONIN [Concomitant]
     Indication: RHEUMATOID ARTHRITIS
     Route: 048
  17. BAYLOTENSIN [Concomitant]
  18. ADALAT [Concomitant]
     Route: 048
  19. DIBETOS-B [Concomitant]
     Route: 048
  20. LIPITOR [Concomitant]
     Route: 048
  21. CATAPRES [Concomitant]
     Route: 048
  22. GLIMICRON [Concomitant]
  23. BASEN [Concomitant]
     Route: 048
  24. CYANOCOBALAMIN [Concomitant]
     Route: 048
  25. NU-LOTAN [Concomitant]
     Route: 048
  26. INSULIN [Concomitant]
     Route: 048
  27. GASTER-D [Concomitant]
  28. FUNGIZONE [Concomitant]
  29. ISODINE [Concomitant]
  30. DIART [Concomitant]
  31. CLARITHROMYCIN [Concomitant]
  32. KETOPROFEN [Concomitant]
  33. LIPOVAS [Concomitant]
  34. URSO [Concomitant]

REACTIONS (3)
  - GINGIVITIS [None]
  - PNEUMOCYSTIS JIROVECI INFECTION [None]
  - PNEUMONIA CYTOMEGALOVIRAL [None]
